FAERS Safety Report 17166664 (Version 1)
Quarter: 2019Q4

REPORT INFORMATION
  Report Type: Spontaneous
  Country: US (occurrence: US)
  Receive Date: 20191217
  Receipt Date: 20191217
  Transmission Date: 20200122
  Serious: No
  Sender: FDA-Public Use
  Company Number: US-SEPTODONT-201905499

PATIENT
  Age: 3 Decade
  Sex: Female

DRUGS (1)
  1. CARBOCAINE [Suspect]
     Active Substance: MEPIVACAINE HYDROCHLORIDE
     Indication: DENTAL LOCAL ANAESTHESIA
     Route: 004
     Dates: start: 20190826, end: 20190906

REACTIONS (1)
  - Drug ineffective [Recovered/Resolved]

NARRATIVE: CASE EVENT DATE: 20190826
